FAERS Safety Report 12468376 (Version 2)
Quarter: 2016Q2

REPORT INFORMATION
  Report Type: Spontaneous
  Country: AU (occurrence: AU)
  Receive Date: 20160615
  Receipt Date: 20160622
  Transmission Date: 20160815
  Serious: Yes (Other)
  Sender: FDA-Public Use
  Company Number: AU-BEH-2016070241

PATIENT
  Age: 44 Year
  Sex: Male
  Weight: 80 kg

DRUGS (2)
  1. PRIVIGEN [Suspect]
     Active Substance: HUMAN IMMUNOGLOBULIN G
     Dosage: UNK
     Route: 042
  2. PRIVIGEN [Suspect]
     Active Substance: HUMAN IMMUNOGLOBULIN G
     Indication: HEREDITARY MOTOR AND SENSORY NEUROPATHY
     Dosage: 40 G, QOW
     Route: 042
     Dates: start: 20160203, end: 20160602

REACTIONS (3)
  - Mood swings [Not Recovered/Not Resolved]
  - Drug ineffective for unapproved indication [Not Recovered/Not Resolved]
  - Flat affect [Not Recovered/Not Resolved]

NARRATIVE: CASE EVENT DATE: 20160203
